FAERS Safety Report 6115612-7 (Version None)
Quarter: 2009Q1

REPORT INFORMATION
  Report Type: 
  Country: None (occurrence: None)
  Receive Date: 20090313
  Receipt Date: 20090120
  Transmission Date: 20090719
  Serious: Yes (Hospitalization)
  Sender: FDA-Public Use
  Company Number: US-JNJCH-2008058364

PATIENT
  Age: 52 Year
  Sex: Male
  Weight: 108.9 kg

DRUGS (1)
  1. KIRKLAND SIGNATURE 5% [Suspect]
     Indication: ALOPECIA
     Dosage: TEXT:1 DROPPER FULL ONCE DAILY
     Route: 061
     Dates: start: 20081121, end: 20081122

REACTIONS (6)
  - ACCIDENTAL EXPOSURE [None]
  - DIZZINESS [None]
  - EYE IRRITATION [None]
  - HEADACHE [None]
  - HYPOAESTHESIA [None]
  - LETHARGY [None]
